FAERS Safety Report 12559344 (Version 1)
Quarter: 2016Q3

REPORT INFORMATION
  Report Type: Spontaneous
  Country: US (occurrence: None)
  Receive Date: 20160714
  Receipt Date: 20160714
  Transmission Date: 20161109
  Serious: Yes (Hospitalization)
  Sender: FDA-Public Use
  Company Number: None

PATIENT
  Age: 62 Year
  Sex: Male

DRUGS (7)
  1. LOPERAMIDE [Concomitant]
     Active Substance: LOPERAMIDE
  2. COMPAZINE [Concomitant]
     Active Substance: PROCHLORPERAZINE MALEATE
  3. FERROUS SUL [Concomitant]
  4. CAPECITABINE 500MG TAB  TEVA [Suspect]
     Active Substance: CAPECITABINE
     Indication: RECTOSIGMOID CANCER
     Dosage: 100 MG 14 DAYS ON , 7  OFF  QAM AND QPM
     Route: 048
     Dates: start: 20151208
  5. XELODA [Concomitant]
     Active Substance: CAPECITABINE
  6. ZOFRAN [Concomitant]
     Active Substance: ONDANSETRON HYDROCHLORIDE
  7. ATIVAN [Concomitant]
     Active Substance: LORAZEPAM

REACTIONS (1)
  - Colectomy [None]

NARRATIVE: CASE EVENT DATE: 20160615
